FAERS Safety Report 5119287-5 (Version None)
Quarter: 2006Q3

REPORT INFORMATION
  Report Type: 
  Country: None (occurrence: None)
  Receive Date: 20060928
  Receipt Date: 20060913
  Transmission Date: 20061208
  Serious: Yes (Hospitalization)
  Sender: FDA-Public Use
  Company Number: 2006-08-1125

PATIENT
  Age: 66 Year
  Sex: Female
  Weight: 78.4723 kg

DRUGS (17)
  1. POSACONAZOLE [Suspect]
     Indication: FUNGAL INFECTION
     Dosage: SEE IMAGE
     Dates: start: 20060623, end: 20060820
  2. POSACONAZOLE [Suspect]
     Indication: FUNGAL INFECTION
     Dosage: SEE IMAGE
     Dates: start: 20060901
  3. CIPROFLOXACIN [Suspect]
     Dosage: 250 MG;BID
  4. ATENOLOL [Concomitant]
  5. AVANDIA [Concomitant]
  6. ASPIRIN [Concomitant]
  7. ALBUTEROL SULFATE (S-P) [Concomitant]
  8. FISH OIL [Concomitant]
  9. GLYBURIDE [Concomitant]
  10. SYNTHROID [Concomitant]
  11. LASIX [Concomitant]
  12. LIPITOR [Concomitant]
  13. LISINOPRIL [Concomitant]
  14. POTASSIUM CHLORIDE [Concomitant]
  15. AMBIEN [Concomitant]
  16. ZOCOR [Concomitant]
  17. LACTOBACILLUS ACIDOPHILUS [Concomitant]

REACTIONS (17)
  - BLOOD ALBUMIN DECREASED [None]
  - BLOOD CREATININE INCREASED [None]
  - BLOOD POTASSIUM DECREASED [None]
  - BRADYCARDIA [None]
  - BRAIN NATRIURETIC PEPTIDE INCREASED [None]
  - CARDIAC FAILURE CONGESTIVE [None]
  - CONDITION AGGRAVATED [None]
  - ELECTROCARDIOGRAM ABNORMAL [None]
  - ELECTROCARDIOGRAM QT CORRECTED INTERVAL PROLONGED [None]
  - ELECTROLYTE IMBALANCE [None]
  - FIBRIN D DIMER INCREASED [None]
  - HAEMATOCRIT DECREASED [None]
  - HAEMOGLOBIN DECREASED [None]
  - LYMPHOCYTE COUNT DECREASED [None]
  - NEUTROPHIL PERCENTAGE INCREASED [None]
  - PLEURISY [None]
  - RASH [None]
